FAERS Safety Report 5315640-5 (Version None)
Quarter: 2007Q2

REPORT INFORMATION
  Report Type: 
  Country: None (occurrence: None)
  Receive Date: 20070430
  Receipt Date: 20070430
  Transmission Date: 20071010
  Serious: Yes (Hospitalization)
  Sender: FDA-Public Use
  Company Number: None

PATIENT
  Sex: Female
  Weight: 49.5 kg

DRUGS (6)
  1. CYCLOPHOSPHAMIDE [Suspect]
     Dosage: 1100 MG
  2. DOXORUBICIN HYDROCHLORIDE [Suspect]
     Dosage: 73.5 MG
  3. PREDNISONE TAB [Suspect]
     Dosage: 300 MG
  4. RITUXIMAB (MOAB C2B8 ANTI CD20 CHIMERIC) [Suspect]
     Dosage: 551 MG
  5. VINCRISTINE SULFATE [Suspect]
     Dosage: 2 MG
  6. PEGFILGRASTIM [Concomitant]

REACTIONS (5)
  - ABDOMINAL PAIN [None]
  - CLOSTRIDIUM DIFFICILE COLITIS [None]
  - DEHYDRATION [None]
  - NEUTROPENIA [None]
  - VOMITING [None]
